FAERS Safety Report 9585298 (Version 2)
Quarter: 2014Q1

REPORT INFORMATION
  Report Type: Spontaneous
  Country: US (occurrence: US)
  Receive Date: 20131002
  Receipt Date: 20140227
  Transmission Date: 20141002
  Serious: No
  Sender: FDA-Public Use
  Company Number: US-AMGEN-USASP2013063677

PATIENT
  Age: 26 Year
  Sex: Female

DRUGS (2)
  1. ENBREL [Suspect]
     Indication: RHEUMATOID ARTHRITIS
     Dosage: 50 MG, 2 TIMES/WK
     Route: 065
     Dates: start: 20130514
  2. ENBREL [Suspect]
     Dosage: 50 MG, 2 TIMES/WK
     Route: 065
     Dates: start: 20130516, end: 201307

REACTIONS (3)
  - Lung disorder [Unknown]
  - Cough [Not Recovered/Not Resolved]
  - Lymph node calcification [Unknown]
